FAERS Safety Report 25316563 (Version 2)
Quarter: 2025Q2

REPORT INFORMATION
  Report Type: Spontaneous
  Country: BG (occurrence: BG)
  Receive Date: 20250515
  Receipt Date: 20250520
  Transmission Date: 20250717
  Serious: Yes (Other)
  Sender: ALEXION PHARMACEUTICALS
  Company Number: BG-AstraZeneca-CH-00867602A

PATIENT

DRUGS (1)
  1. DAPAGLIFLOZIN [Suspect]
     Active Substance: DAPAGLIFLOZIN

REACTIONS (3)
  - Pulmonary congestion [Unknown]
  - N-terminal prohormone brain natriuretic peptide increased [Unknown]
  - Off label use [Unknown]
